FAERS Safety Report 14765076 (Version 2)
Quarter: 2018Q2

REPORT INFORMATION
  Report Type: Spontaneous
  Country: US (occurrence: US)
  Receive Date: 20180416
  Receipt Date: 20180619
  Transmission Date: 20180711
  Serious: No
  Sender: FDA-Public Use
  Company Number: US-GLAXOSMITHKLINE-US2018063471

PATIENT
  Sex: Female

DRUGS (10)
  1. BREO ELLIPTA [Suspect]
     Active Substance: FLUTICASONE FUROATE\VILANTEROL TRIFENATATE
     Dosage: UNK
  2. VERAPAMIL [Concomitant]
     Active Substance: VERAPAMIL HYDROCHLORIDE
  3. BREO ELLIPTA [Suspect]
     Active Substance: FLUTICASONE FUROATE\VILANTEROL TRIFENATATE
     Indication: LUNG DISORDER
     Dosage: 1 PUFF(S), 1D
     Route: 055
     Dates: start: 2016
  4. CLONIDINE. [Concomitant]
     Active Substance: CLONIDINE
  5. SYNTHROID [Concomitant]
     Active Substance: LEVOTHYROXINE SODIUM
  6. ATORVASTATIN [Concomitant]
     Active Substance: ATORVASTATIN
  7. LASIX [Concomitant]
     Active Substance: FUROSEMIDE
  8. ADVAIR DISKUS [Suspect]
     Active Substance: FLUTICASONE PROPIONATE\SALMETEROL XINAFOATE
     Indication: PRODUCT USED FOR UNKNOWN INDICATION
     Dosage: UNK
     Dates: end: 2016
  9. VALSARTAN. [Concomitant]
     Active Substance: VALSARTAN
  10. OMEPRAZOLE. [Concomitant]
     Active Substance: OMEPRAZOLE

REACTIONS (6)
  - Blood pressure systolic increased [Not Recovered/Not Resolved]
  - Epistaxis [Recovered/Resolved]
  - Product use in unapproved indication [Recovered/Resolved]
  - Blood pressure increased [Not Recovered/Not Resolved]
  - Dysphonia [Unknown]
  - Drug dose omission [Unknown]
